FAERS Safety Report 9342176 (Version 4)
Quarter: 2014Q1

REPORT INFORMATION
  Report Type: Spontaneous
  Country: US (occurrence: ES)
  Receive Date: 20130611
  Receipt Date: 20140312
  Transmission Date: 20141002
  Serious: Yes (Hospitalization)
  Sender: FDA-Public Use
  Company Number: ES-FRI-1000045822

PATIENT
  Age: 76 Year
  Sex: Male
  Weight: 92 kg

DRUGS (13)
  1. ROFLUMILAST [Suspect]
     Indication: CHRONIC OBSTRUCTIVE PULMONARY DISEASE
     Dosage: 500 MCG
     Route: 048
     Dates: start: 20110401, end: 20110407
  2. ROFLUMILAST [Suspect]
     Indication: CHRONIC OBSTRUCTIVE PULMONARY DISEASE
     Dosage: 250 MCG
     Route: 048
     Dates: start: 20130218, end: 20130330
  3. ROFLUMILAST [Suspect]
     Indication: CHRONIC OBSTRUCTIVE PULMONARY DISEASE
     Dosage: 500 MCG
     Route: 048
     Dates: start: 20130331, end: 20140116
  4. ROFLUMILAST [Suspect]
     Indication: CHRONIC OBSTRUCTIVE PULMONARY DISEASE
     Dosage: 500 MCG 2 DAYS/WEEK
     Route: 048
     Dates: start: 20140120
  5. SPIRIVA [Concomitant]
     Dates: start: 1999
  6. SERETIDE [Concomitant]
     Dates: start: 1999
  7. ONBREZ [Concomitant]
     Dates: start: 1999
  8. VENTOLIN [Concomitant]
     Dates: start: 1999
  9. ZARATOR [Concomitant]
  10. ADIRO [Concomitant]
  11. OFTAN MACULA ESTEVE [Concomitant]
  12. DIOVAN [Concomitant]
  13. PARACETAMOL [Concomitant]

REACTIONS (7)
  - Haematemesis [Not Recovered/Not Resolved]
  - Diarrhoea [Recovered/Resolved]
  - Headache [Recovered/Resolved]
  - Gastroenteritis [Recovered/Resolved]
  - Chest pain [Recovered/Resolved]
  - Insomnia [Recovered/Resolved]
  - Off label use [Recovered/Resolved]
